FAERS Safety Report 24627268 (Version 1)
Quarter: 2024Q4

REPORT INFORMATION
  Report Type: Spontaneous
  Country: US (occurrence: US)
  Receive Date: 20241116
  Receipt Date: 20241116
  Transmission Date: 20250115
  Serious: Yes (Other)
  Sender: AUROBINDO
  Company Number: US-AUROBINDO-AUR-APL-2024-055439

PATIENT
  Age: 79 Year
  Sex: Female

DRUGS (10)
  1. DECITABINE [Suspect]
     Active Substance: DECITABINE
     Indication: Chronic myelomonocytic leukaemia
     Dosage: UNK
     Route: 065
  2. HYDROXYUREA [Suspect]
     Active Substance: HYDROXYUREA
     Indication: Chronic myelomonocytic leukaemia
     Dosage: UNK
     Route: 065
  3. DASATINIB [Concomitant]
     Active Substance: DASATINIB
     Indication: Chronic myelomonocytic leukaemia
     Dosage: 20 MILLIGRAM, DAILY
     Route: 065
  4. DASATINIB [Concomitant]
     Active Substance: DASATINIB
     Dosage: 100 MILLIGRAM, DAILY (RESTARTED)
     Route: 065
  5. NELARABINE [Concomitant]
     Active Substance: NELARABINE
     Indication: Chronic myelomonocytic leukaemia
     Dosage: UNK
     Route: 065
  6. NELARABINE [Concomitant]
     Active Substance: NELARABINE
     Dosage: 2 CYCLES
     Route: 065
  7. CYCLOPHOSPHAMIDE [Concomitant]
     Active Substance: CYCLOPHOSPHAMIDE
     Indication: Chronic myelomonocytic leukaemia
     Dosage: UNK
     Route: 065
  8. VINCRISTINE [Concomitant]
     Active Substance: VINCRISTINE
     Indication: Chronic myelomonocytic leukaemia
     Dosage: UNK
     Route: 065
  9. DEXAMETHASONE [Concomitant]
     Active Substance: DEXAMETHASONE
     Indication: Chronic myelomonocytic leukaemia
     Dosage: UNK
     Route: 065
  10. METHOTREXATE [Concomitant]
     Active Substance: METHOTREXATE
     Indication: Chronic myelomonocytic leukaemia
     Dosage: UNK
     Route: 065

REACTIONS (2)
  - Cytopenia [Recovered/Resolved]
  - Drug ineffective [Unknown]
